FAERS Safety Report 9323794 (Version 1)
Quarter: 2013Q2

REPORT INFORMATION
  Report Type: Spontaneous
  Country: US (occurrence: US)
  Receive Date: 20130603
  Receipt Date: 20130603
  Transmission Date: 20140414
  Serious: Yes (Death)
  Sender: FDA-Public Use
  Company Number: US-B.I. PHARMACEUTICALS,INC./RIDGEFIELD-2013-BI-15326BP

PATIENT
  Sex: Female

DRUGS (1)
  1. PRADAXA [Suspect]
     Indication: ATRIAL FIBRILLATION
     Dates: start: 201110

REACTIONS (7)
  - Cerebral infarction [Fatal]
  - Haemarthrosis [Unknown]
  - Fall [Unknown]
  - Muscular weakness [Unknown]
  - Balance disorder [Unknown]
  - Dizziness [Unknown]
  - Pneumothorax [Unknown]
